FAERS Safety Report 5213523-2 (Version None)
Quarter: 2007Q1

REPORT INFORMATION
  Report Type: 
  Country: None (occurrence: None)
  Receive Date: 20070119
  Receipt Date: 20070115
  Transmission Date: 20070707
  Serious: Yes (Disabling)
  Sender: FDA-Public Use
  Company Number: GB-ROCHE-473313

PATIENT
  Age: 62 Year
  Sex: Female
  Weight: 58.7 kg

DRUGS (5)
  1. CAPECITABINE [Suspect]
     Route: 048
     Dates: start: 20060314, end: 20060830
  2. OXALIPLATIN [Suspect]
     Route: 042
     Dates: start: 20060314, end: 20060830
  3. ONDANSETRON [Concomitant]
     Route: 048
  4. DEXAMETHASONE [Concomitant]
     Route: 048
  5. DOMPERIDONE [Concomitant]
     Route: 048

REACTIONS (5)
  - BLINDNESS UNILATERAL [None]
  - OPTIC ATROPHY [None]
  - OPTIC ISCHAEMIC NEUROPATHY [None]
  - PALMAR-PLANTAR ERYTHRODYSAESTHESIA SYNDROME [None]
  - PAPILLITIS [None]
